FAERS Safety Report 12059999 (Version 1)
Quarter: 2016Q1

REPORT INFORMATION
  Report Type: Spontaneous
  Country: GB (occurrence: GB)
  Receive Date: 20160210
  Receipt Date: 20160210
  Transmission Date: 20160526
  Serious: Yes (Other)
  Sender: FDA-Public Use
  Company Number: GB-TEVA-631593ACC

PATIENT
  Sex: Female

DRUGS (2)
  1. FUROSEMIDE. [Suspect]
     Active Substance: FUROSEMIDE
  2. DULCOLAX NOS [Concomitant]
     Active Substance: BISACODYL OR DOCUSATE SODIUM
     Indication: CONSTIPATION

REACTIONS (11)
  - Blood disorder [Unknown]
  - Thyroid disorder [Unknown]
  - Pyrexia [Unknown]
  - Anaemia [Unknown]
  - Oropharyngeal pain [Unknown]
  - Loose tooth [Unknown]
  - Hot flush [Unknown]
  - White blood cell count decreased [Unknown]
  - Joint swelling [Unknown]
  - Mouth ulceration [Unknown]
  - Hypotension [Unknown]
